FAERS Safety Report 20850072 (Version 1)
Quarter: 2022Q2

REPORT INFORMATION
  Report Type: Spontaneous
  Country: US (occurrence: US)
  Receive Date: 20220519
  Receipt Date: 20220519
  Transmission Date: 20220721
  Serious: Yes (Other)
  Sender: FDA-Public Use
  Company Number: US-LUNDBECK-DKLU3047873

PATIENT
  Age: 21 Year
  Sex: Male

DRUGS (5)
  1. VORTIOXETINE [Suspect]
     Active Substance: VORTIOXETINE
     Indication: Mental disorder
     Dosage: UNK
     Route: 065
  2. ATOMOXETINE [Suspect]
     Active Substance: ATOMOXETINE
     Indication: Mental disorder
     Dosage: UNK
     Route: 065
  3. LISDEXAMFETAMINE DIMESYLATE [Suspect]
     Active Substance: LISDEXAMFETAMINE DIMESYLATE
     Indication: Mental disorder
     Dosage: UNK
     Route: 065
  4. FLUOXETINE [Suspect]
     Active Substance: FLUOXETINE HYDROCHLORIDE
     Indication: Mental disorder
     Dosage: UNK
     Route: 065
  5. BUSPIRONE [Suspect]
     Active Substance: BUSPIRONE HYDROCHLORIDE
     Indication: Mental disorder
     Dosage: UNK
     Route: 065

REACTIONS (1)
  - Altered state of consciousness [Not Recovered/Not Resolved]
